FAERS Safety Report 9796579 (Version 2)
Quarter: 2014Q1

REPORT INFORMATION
  Report Type: Spontaneous
  Country: FR (occurrence: FR)
  Receive Date: 20140103
  Receipt Date: 20140224
  Transmission Date: 20141002
  Serious: Yes (Hospitalization)
  Sender: FDA-Public Use
  Company Number: FR-PFIZER INC-2013374296

PATIENT
  Age: 14 Year
  Sex: Female

DRUGS (2)
  1. CELEBREX [Suspect]
     Dosage: 45 DF, SINGLE
     Route: 048
     Dates: start: 20130926, end: 20130926
  2. CEBUTID [Suspect]
     Dosage: 4 DF, SINGLE
     Route: 048
     Dates: start: 20130926, end: 20130926

REACTIONS (4)
  - Poisoning deliberate [Recovering/Resolving]
  - Blood creatinine increased [Recovering/Resolving]
  - Lipase increased [Recovering/Resolving]
  - Amylase increased [Recovering/Resolving]
